FAERS Safety Report 4519639-8 (Version None)
Quarter: 2004Q4

REPORT INFORMATION
  Report Type: 
  Country: None (occurrence: None)
  Receive Date: 20041206
  Receipt Date: 20041126
  Transmission Date: 20050328
  Serious: Yes (Hospitalization)
  Sender: FDA-Public Use
  Company Number: GB-MERCK-0411GBR00261

PATIENT
  Age: 65 Year
  Sex: Female

DRUGS (1)
  1. ZOCOR [Suspect]
     Route: 048
     Dates: start: 19920101

REACTIONS (3)
  - DIFFICULTY IN WALKING [None]
  - MUSCLE DISORDER [None]
  - SENSATION OF HEAVINESS [None]
